FAERS Safety Report 6454806-8 (Version None)
Quarter: 2009Q4

REPORT INFORMATION
  Report Type: 
  Country: None (occurrence: None)
  Receive Date: 20091124
  Receipt Date: 20091118
  Transmission Date: 20100525
  Serious: Yes (Death, Other)
  Sender: FDA-Public Use
  Company Number: US-GENENTECH-276399

PATIENT
  Sex: Male
  Weight: 58.957 kg

DRUGS (20)
  1. RITUXAN [Suspect]
     Indication: LYMPHOMA
     Dosage: 700 MG, Q3M
     Route: 042
     Dates: start: 20070621
  2. RITUXAN [Suspect]
     Indication: CUTANEOUS LUPUS ERYTHEMATOSUS
     Dosage: 720 MG, UNK
     Route: 042
     Dates: start: 20051122
  3. RITUXAN [Suspect]
     Indication: NON-HODGKIN'S LYMPHOMA
     Dosage: 100 MG, UNK
     Route: 042
     Dates: start: 20051024
  4. NEULASTA [Concomitant]
     Indication: DRUG USE FOR UNKNOWN INDICATION
     Dosage: 6 MG, UNK
     Route: 042
     Dates: start: 20051026
  5. GRANISETRON HCL [Concomitant]
     Indication: DRUG USE FOR UNKNOWN INDICATION
     Dosage: 1 MG, UNK
     Route: 042
     Dates: start: 20081117
  6. DEXAMETHASONE [Concomitant]
     Indication: DRUG USE FOR UNKNOWN INDICATION
     Dosage: 2 MG, UNK
     Route: 042
     Dates: start: 20051024
  7. DEXAMETHASONE [Concomitant]
     Dosage: 4 MG, UNK
     Route: 042
     Dates: start: 20051125
  8. ARANESP [Concomitant]
     Indication: DRUG USE FOR UNKNOWN INDICATION
     Dosage: 200 UNK, UNK
     Route: 042
     Dates: start: 20051031
  9. KYTRIL [Concomitant]
     Indication: DRUG USE FOR UNKNOWN INDICATION
     Dosage: 1 MG, UNK
     Route: 042
     Dates: start: 20080221
  10. CYCLOPHOSPHAMIDE [Concomitant]
     Indication: DRUG USE FOR UNKNOWN INDICATION
     Dosage: 1440 MG, UNK
     Route: 042
     Dates: start: 20051025
  11. CYCLOPHOSPHAMIDE [Concomitant]
     Dosage: 500 MG, UNK
     Route: 042
     Dates: start: 20060223
  12. CYCLOPHOSPHAMIDE [Concomitant]
     Dosage: 1000 MG, UNK
     Route: 042
     Dates: start: 20060105
  13. DOXORUBICIN HCL [Concomitant]
     Indication: DRUG USE FOR UNKNOWN INDICATION
     Dosage: 30 MG, UNK
     Route: 042
     Dates: start: 20060223
  14. DOXORUBICIN HCL [Concomitant]
     Dosage: 96 MG, UNK
     Route: 042
     Dates: start: 20051025
  15. DOXORUBICIN HCL [Concomitant]
     Dosage: 70 MG, UNK
     Route: 042
     Dates: start: 20060105
  16. VINCRISTINE [Concomitant]
     Indication: DRUG USE FOR UNKNOWN INDICATION
     Dosage: 1 MG, UNK
     Route: 042
     Dates: start: 20051125
  17. VINCRISTINE [Concomitant]
     Dosage: 0.35 MG, UNK
     Route: 042
     Dates: start: 20060105
  18. VINCRISTINE [Concomitant]
     Dosage: 2 MG, UNK
     Route: 042
     Dates: start: 20051025
  19. LORAZEPAM [Concomitant]
     Indication: DRUG USE FOR UNKNOWN INDICATION
     Dosage: 0.25 MG, UNK
     Route: 042
     Dates: start: 20051025
  20. DIAZEPAM [Concomitant]
     Indication: DRUG USE FOR UNKNOWN INDICATION

REACTIONS (4)
  - ABASIA [None]
  - DYSARTHRIA [None]
  - VERTIGO [None]
  - VISUAL IMPAIRMENT [None]
